FAERS Safety Report 4899505-9 (Version None)
Quarter: 2006Q1

REPORT INFORMATION
  Report Type: 
  Country: None (occurrence: None)
  Receive Date: 20060118
  Receipt Date: 20050820
  Transmission Date: 20060701
  Serious: No
  Sender: FDA-Public Use
  Company Number: 2005001157

PATIENT
  Age: 56 Year
  Sex: Female

DRUGS (7)
  1. TARCEVA [Suspect]
     Indication: NON-SMALL CELL LUNG CANCER
     Dosage: 150 MG (QD), ORAL
     Route: 048
     Dates: start: 20050401, end: 20050810
  2. EVISTA [Concomitant]
  3. ALLEGRA [Concomitant]
  4. FLONASE [Concomitant]
  5. VITAMINS (VITAMINS) [Concomitant]
  6. CALCIUM (CALCIUM) [Concomitant]
  7. VITAMIN D [Concomitant]

REACTIONS (10)
  - ACNE [None]
  - COUGH [None]
  - DYSPNOEA [None]
  - MUSCLE SPASMS [None]
  - POSTNASAL DRIP [None]
  - PULMONARY OEDEMA [None]
  - THIRST [None]
  - THROAT IRRITATION [None]
  - URINARY TRACT INFECTION [None]
  - URTICARIA [None]
